FAERS Safety Report 9643458 (Version 1)
Quarter: 2013Q4

REPORT INFORMATION
  Report Type: Spontaneous
  Country: US (occurrence: US)
  Receive Date: 20131024
  Receipt Date: 20131024
  Transmission Date: 20140711
  Serious: No
  Sender: FDA-Public Use
  Company Number: US-BAYER-2013-129243

PATIENT
  Age: 74 Year
  Sex: Female
  Weight: 86.17 kg

DRUGS (8)
  1. ALEVE CAPLET [Suspect]
     Indication: PAIN IN EXTREMITY
     Route: 048
  2. ALEVE CAPLET [Suspect]
     Indication: PAIN IN EXTREMITY
     Dosage: 2 DF, TWICE WITHIN 1 HR
     Route: 048
     Dates: start: 20131021
  3. KLOR-CON [Concomitant]
  4. DIOVAN [Concomitant]
  5. ZETIA [Concomitant]
  6. HYDROCHLOROTHIAZIDE [Concomitant]
  7. METAMUCIL [Concomitant]
     Indication: CONSTIPATION
  8. IBUPROFEN [Concomitant]
     Dosage: 400 MG, UNK

REACTIONS (1)
  - Extra dose administered [None]
